FAERS Safety Report 20790758 (Version 2)
Quarter: 2022Q2

REPORT INFORMATION
  Report Type: Spontaneous
  Country: JP (occurrence: JP)
  Receive Date: 20220505
  Receipt Date: 20220610
  Transmission Date: 20220721
  Serious: Yes (Hospitalization)
  Sender: FDA-Public Use
  Company Number: JP-JNJFOC-20220457141

PATIENT
  Age: 2 Decade
  Sex: Male

DRUGS (3)
  1. OPSUMIT [Suspect]
     Active Substance: MACITENTAN
     Indication: Portopulmonary hypertension
     Dosage: DOSE UNKNOWN
     Route: 048
  2. TADALAFIL [Concomitant]
     Active Substance: TADALAFIL
     Indication: Portopulmonary hypertension
     Dosage: DOSE UNKNOWN
     Route: 048
  3. SELEXIPAG [Concomitant]
     Active Substance: SELEXIPAG
     Indication: Portopulmonary hypertension
     Dosage: DOSE UNKNOWN
     Route: 048

REACTIONS (3)
  - Hospitalisation [Unknown]
  - Off label use [Unknown]
  - Product use in unapproved indication [Unknown]
